FAERS Safety Report 11592046 (Version 1)
Quarter: 2015Q4

REPORT INFORMATION
  Report Type: Spontaneous
  Country: US (occurrence: US)
  Receive Date: 20151005
  Receipt Date: 20151005
  Transmission Date: 20160304
  Serious: No
  Sender: FDA-Public Use
  Company Number: US-PFIZER INC-2015323555

PATIENT
  Age: 68 Year
  Sex: Female
  Weight: 80.73 kg

DRUGS (1)
  1. NEURONTIN [Suspect]
     Active Substance: GABAPENTIN
     Indication: FIBROMYALGIA
     Dosage: 300 MG, 2X/DAY
     Dates: start: 201505, end: 201507

REACTIONS (1)
  - Drug ineffective for unapproved indication [Unknown]
